FAERS Safety Report 5279905-8 (Version None)
Quarter: 2007Q1

REPORT INFORMATION
  Report Type: 
  Country: None (occurrence: None)
  Receive Date: 20070329
  Receipt Date: 20070315
  Transmission Date: 20070707
  Serious: Yes (Hospitalization)
  Sender: FDA-Public Use
  Company Number: PHNU2007DE01202

PATIENT
  Sex: Male

DRUGS (10)
  1. TEGRETOL [Suspect]
     Dosage: 800 MG/DAY
     Route: 048
     Dates: start: 20060516, end: 20060517
  2. TEGRETOL [Suspect]
     Dosage: 400 MG/DAY
     Route: 048
     Dates: start: 20060518, end: 20060518
  3. TEGRETOL [Suspect]
     Dosage: 400 MG/DAY
     Route: 048
     Dates: start: 20060515, end: 20060515
  4. POLAMIDON [Concomitant]
     Dosage: 25 MG/DAY
     Route: 048
     Dates: end: 20060515
  5. POLAMIDON [Concomitant]
     Dosage: 20 MG/DAY
     Route: 048
     Dates: start: 20060516
  6. ROHYPNOL [Concomitant]
     Dosage: 4 MG/DAY
     Route: 048
     Dates: end: 20060515
  7. DIAZEPAM [Concomitant]
     Dosage: 20 MG/DAY
     Route: 048
     Dates: start: 20060516, end: 20060517
  8. DIAZEPAM [Concomitant]
     Dosage: 15 MG/DAY
     Route: 048
     Dates: start: 20060518, end: 20060518
  9. KALETRA [Suspect]
     Dosage: 6 CAPSULE/DAY
     Dates: start: 20040101
  10. TRUVADA [Concomitant]
     Dosage: 1 TABLET/DAY
     Route: 048
     Dates: start: 20040101

REACTIONS (9)
  - ASPARTATE AMINOTRANSFERASE INCREASED [None]
  - COORDINATION ABNORMAL [None]
  - DIZZINESS [None]
  - DRUG CLEARANCE DECREASED [None]
  - DRUG INTERACTION [None]
  - DRUG LEVEL INCREASED [None]
  - GAMMA-GLUTAMYLTRANSFERASE INCREASED [None]
  - GENERAL PHYSICAL HEALTH DETERIORATION [None]
  - NYSTAGMUS [None]
